FAERS Safety Report 5989653-4 (Version None)
Quarter: 2008Q4

REPORT INFORMATION
  Report Type: 
  Country: None (occurrence: None)
  Receive Date: 20081208
  Receipt Date: 20081201
  Transmission Date: 20090506
  Serious: Yes (Death, Life-Threatening, Hospitalization)
  Sender: FDA-Public Use
  Company Number: 2008-03513

PATIENT
  Age: 71 Year
  Sex: Male

DRUGS (8)
  1. VELCADE [Suspect]
     Indication: DRUG USE FOR UNKNOWN INDICATION
     Dosage: 2 MG, INTRATHECAL
     Route: 037
     Dates: start: 20080919
  2. RITUXIMAB [Concomitant]
  3. CYCLOPHOSPHAMIDE [Concomitant]
  4. IDARUBICIN HCL [Concomitant]
  5. ONCOVIN [Concomitant]
  6. PREDNISONE TAB [Concomitant]
  7. METHOTREXATE [Concomitant]
  8. METHYLPREDNISOLONE 16MG TAB [Concomitant]

REACTIONS (8)
  - BRAIN INJURY [None]
  - CARDIAC ARREST [None]
  - CARDIAC FAILURE [None]
  - CONFUSIONAL STATE [None]
  - CONVULSION [None]
  - INCORRECT ROUTE OF DRUG ADMINISTRATION [None]
  - SOMNOLENCE [None]
  - WRONG DRUG ADMINISTERED [None]
